FAERS Safety Report 9288091 (Version 1)
Quarter: 2013Q2

REPORT INFORMATION
  Report Type: Spontaneous
  Country: US (occurrence: US)
  Receive Date: 20130514
  Receipt Date: 20130514
  Transmission Date: 20140414
  Serious: No
  Sender: FDA-Public Use
  Company Number: US-TEVA-402321USA

PATIENT
  Age: 50 Year
  Sex: Female
  Weight: 90.8 kg

DRUGS (8)
  1. AZILECT [Suspect]
     Indication: PARKINSON^S DISEASE
     Dates: start: 201006, end: 201009
  2. AZILECT [Suspect]
     Dates: start: 201009, end: 201009
  3. AZILECT [Suspect]
     Dates: start: 201009, end: 2012
  4. AZILECT [Suspect]
     Dates: start: 2012, end: 2012
  5. AZILECT [Suspect]
     Dates: start: 2012
  6. STALEVO [Concomitant]
     Indication: GAIT DISTURBANCE
     Dosage: 5X/DAY
     Route: 048
  7. MIRAPEX [Concomitant]
     Dosage: AT NIGHT
  8. METOPROLOL [Concomitant]
     Indication: HYPERTENSION
     Dosage: QD
     Route: 048

REACTIONS (7)
  - Drug ineffective [Unknown]
  - Arthralgia [Unknown]
  - Gait disturbance [Unknown]
  - Malaise [Unknown]
  - Influenza like illness [Unknown]
  - Pain [Unknown]
  - Blood pressure increased [Unknown]
